FAERS Safety Report 16043857 (Version 2)
Quarter: 2019Q2

REPORT INFORMATION
  Report Type: Report from Study
  Country: BR (occurrence: BR)
  Receive Date: 20190306
  Receipt Date: 20190408
  Transmission Date: 20190711
  Serious: Yes (Life-Threatening, Hospitalization, Disabling)
  Sender: FDA-Public Use
  Company Number: PHHY2019BR047459

PATIENT
  Age: 42 Year
  Sex: Female
  Weight: 47 kg

DRUGS (2)
  1. COSENTYX [Suspect]
     Active Substance: SECUKINUMAB
     Indication: PSORIATIC ARTHROPATHY
     Dosage: 300 MG (2 PENS), QW
     Route: 058
     Dates: start: 20181130
  2. COSENTYX [Suspect]
     Active Substance: SECUKINUMAB
     Dosage: 150 MG (1 PEN), QMO
     Route: 058

REACTIONS (74)
  - Rhinorrhoea [Unknown]
  - Neck pain [Unknown]
  - Tremor [Unknown]
  - Sciatica [Unknown]
  - Paralysis [Unknown]
  - Fatigue [Not Recovered/Not Resolved]
  - Inflammation [Unknown]
  - Dyspnoea [Not Recovered/Not Resolved]
  - Cough [Recovering/Resolving]
  - Pain [Not Recovered/Not Resolved]
  - Skin plaque [Recovered/Resolved]
  - Muscle spasms [Unknown]
  - Influenza [Recovering/Resolving]
  - Anaphylactic shock [Unknown]
  - Temperature intolerance [Unknown]
  - Pyrexia [Not Recovered/Not Resolved]
  - Decreased immune responsiveness [Unknown]
  - Weight increased [Not Recovered/Not Resolved]
  - Heart rate increased [Unknown]
  - Anxiety [Unknown]
  - Abdominal distension [Unknown]
  - Bronchitis [Not Recovered/Not Resolved]
  - Musculoskeletal pain [Unknown]
  - Spinal pain [Unknown]
  - Onychoclasis [Not Recovered/Not Resolved]
  - Nail discolouration [Not Recovered/Not Resolved]
  - Swelling [Not Recovered/Not Resolved]
  - Skin discolouration [Not Recovered/Not Resolved]
  - Inappropriate schedule of product administration [Unknown]
  - Chills [Unknown]
  - Feeling abnormal [Unknown]
  - Flushing [Unknown]
  - Skin swelling [Unknown]
  - Palpitations [Unknown]
  - Chest pain [Unknown]
  - Muscle contracture [Unknown]
  - Flatulence [Unknown]
  - Uterine hypertonus [Unknown]
  - Malaise [Not Recovered/Not Resolved]
  - Acne [Not Recovered/Not Resolved]
  - Chillblains [Unknown]
  - Arthritis [Unknown]
  - Agitation [Unknown]
  - Therapeutic product effect decreased [Not Recovered/Not Resolved]
  - Sluggishness [Unknown]
  - Pruritus [Unknown]
  - Vasodilatation [Unknown]
  - Salivary hypersecretion [Unknown]
  - Abdominal pain upper [Unknown]
  - Labyrinthitis [Unknown]
  - Gait inability [Unknown]
  - Arthralgia [Not Recovered/Not Resolved]
  - Asthenia [Unknown]
  - Skin exfoliation [Unknown]
  - Sneezing [Unknown]
  - Nasal disorder [Unknown]
  - Burning sensation [Not Recovered/Not Resolved]
  - Headache [Unknown]
  - Dizziness [Unknown]
  - Myalgia [Unknown]
  - Paraesthesia [Not Recovered/Not Resolved]
  - Hyperhidrosis [Unknown]
  - Macule [Unknown]
  - Rhinitis [Unknown]
  - Dry mouth [Unknown]
  - Back pain [Unknown]
  - Diarrhoea [Unknown]
  - Abdominal discomfort [Unknown]
  - Dyspepsia [Unknown]
  - Vulvovaginal burning sensation [Unknown]
  - Deafness bilateral [Unknown]
  - Nail disorder [Not Recovered/Not Resolved]
  - Alopecia [Not Recovered/Not Resolved]
  - Skin hypertrophy [Not Recovered/Not Resolved]

NARRATIVE: CASE EVENT DATE: 20181207
